FAERS Safety Report 9817107 (Version 5)
Quarter: 2014Q2

REPORT INFORMATION
  Report Type: Spontaneous
  Country: US (occurrence: US)
  Receive Date: 20140114
  Receipt Date: 20140403
  Transmission Date: 20141212
  Serious: Yes (Other)
  Sender: FDA-Public Use
  Company Number: PHEH2014US000748

PATIENT
  Age: 56 Year
  Sex: Female

DRUGS (8)
  1. RECLAST [Suspect]
     Indication: OSTEITIS DEFORMANS
     Dosage: UNK UKN, UNK
     Route: 042
     Dates: start: 20131212
  2. NEURONTIN [Concomitant]
     Dosage: 20 MG, UNK
  3. CRESTOR [Concomitant]
     Dosage: 5 MG, TIW
  4. VITAMIN D [Concomitant]
     Dosage: 2000 MG, UNK
  5. CALCIUM [Concomitant]
     Dosage: 600 MG, UNK
  6. DIURETICS [Concomitant]
     Dosage: UNK UKN, UNK
  7. GABAPENTIN [Concomitant]
     Dosage: 100 MG, UP TO 6 PER DAY
  8. TRAMADOL [Concomitant]
     Dosage: 100 MG, UNK

REACTIONS (19)
  - Polyp [Unknown]
  - Tenderness [Unknown]
  - Oedema peripheral [Unknown]
  - Pain [Unknown]
  - Abdominal infection [Unknown]
  - Frequent bowel movements [Unknown]
  - Gait disturbance [Unknown]
  - Contusion [Unknown]
  - Discomfort [Unknown]
  - Frustration [Unknown]
  - Insomnia [Unknown]
  - Groin pain [Unknown]
  - Asthenia [Unknown]
  - Joint swelling [Unknown]
  - Musculoskeletal stiffness [Unknown]
  - Oedema [Unknown]
  - Pain in extremity [Unknown]
  - Constipation [Unknown]
  - No therapeutic response [Unknown]
